FAERS Safety Report 6309523-1 (Version None)
Quarter: 2009Q3

REPORT INFORMATION
  Report Type: 
  Country: None (occurrence: None)
  Receive Date: 20090814
  Receipt Date: 20090804
  Transmission Date: 20100115
  Serious: Yes (Hospitalization)
  Sender: FDA-Public Use
  Company Number: CA-JNJFOC-20090707851

PATIENT
  Age: 55 Year
  Sex: Male

DRUGS (1)
  1. REMICADE [Suspect]
     Indication: PSORIASIS
     Route: 042

REACTIONS (1)
  - ALCOHOLIC SEIZURE [None]
